FAERS Safety Report 14769342 (Version 6)
Quarter: 2018Q3

REPORT INFORMATION
  Report Type: Spontaneous
  Country: DE (occurrence: DE)
  Receive Date: 20180417
  Receipt Date: 20180820
  Transmission Date: 20181010
  Serious: Yes (Other)
  Sender: FDA-Public Use
  Company Number: PHHY2018DE062259

PATIENT
  Sex: Male

DRUGS (16)
  1. SIMVA [Interacting]
     Active Substance: SIMVASTATIN
     Dosage: 20 MG, QD
     Route: 065
  2. ACETYLSALICYLIC ACID [Interacting]
     Active Substance: ASPIRIN
     Indication: PRODUCT USED FOR UNKNOWN INDICATION
     Dosage: 1 DF, QD
     Route: 065
  3. BISOPROLOL [Interacting]
     Active Substance: BISOPROLOL
     Indication: PRODUCT USED FOR UNKNOWN INDICATION
     Dosage: 1 DF, QD (IN THE MORNING)
     Route: 065
  4. FORADIL [Interacting]
     Active Substance: FORMOTEROL FUMARATE
     Indication: PRODUCT USED FOR UNKNOWN INDICATION
     Dosage: 12 UG, PRN
     Route: 065
  5. SPIRONOLACTON HEXAL [Interacting]
     Active Substance: SPIRONOLACTONE
     Indication: PRODUCT USED FOR UNKNOWN INDICATION
     Dosage: UNK
     Route: 065
  6. SIMVA [Interacting]
     Active Substance: SIMVASTATIN
     Indication: PRODUCT USED FOR UNKNOWN INDICATION
     Dosage: UNK
     Route: 065
  7. MIFLONIDE [Interacting]
     Active Substance: BUDESONIDE
     Indication: PRODUCT USED FOR UNKNOWN INDICATION
     Dosage: 400 UG, PRN
     Route: 065
  8. SPIRONOLACTON HEXAL [Interacting]
     Active Substance: SPIRONOLACTONE
     Dosage: 50 MG, QD (MORNING)
     Route: 065
  9. CANDESARTAN CILEXETIL?HYDROCHLOROTHIAZIDE [Interacting]
     Active Substance: CANDESARTAN CILEXETIL\HYDROCHLOROTHIAZIDE
     Indication: PRODUCT USED FOR UNKNOWN INDICATION
     Dosage: 1 DF, QD, (NIGHT)
     Route: 065
  10. SPIRIVA [Interacting]
     Active Substance: TIOTROPIUM BROMIDE MONOHYDRATE
     Indication: PRODUCT USED FOR UNKNOWN INDICATION
     Dosage: 2.5 UG, PRN
     Route: 065
  11. L?THYROXINE [Interacting]
     Active Substance: LEVOTHYROXINE
     Indication: PRODUCT USED FOR UNKNOWN INDICATION
     Dosage: 50 UG, QD (MORNING)
     Route: 065
  12. GLIMEPIRIDE. [Interacting]
     Active Substance: GLIMEPIRIDE
     Indication: PRODUCT USED FOR UNKNOWN INDICATION
     Dosage: 1 DF, QD (IN THE MORNING)
     Route: 065
  13. PANTOPRAZOLE [Suspect]
     Active Substance: PANTOPRAZOLE
     Indication: PRODUCT USED FOR UNKNOWN INDICATION
     Dosage: 40 MG, BID
     Route: 065
  14. GLIMEPIRIDE. [Interacting]
     Active Substance: GLIMEPIRIDE
     Dosage: 6 MG, QD (ONE TABLET DAILY IN THE MORNING)
     Route: 065
  15. PANTOPRAZOLE [Interacting]
     Active Substance: PANTOPRAZOLE
     Dosage: 80 MG, QD (BID)
     Route: 065
  16. SPIRONOLACTON HEXAL [Interacting]
     Active Substance: SPIRONOLACTONE
     Dosage: 6 MG, QD
     Route: 065

REACTIONS (2)
  - Drug interaction [Unknown]
  - Blood glucose increased [Unknown]
